FAERS Safety Report 4829363-X (Version None)
Quarter: 2005Q4

REPORT INFORMATION
  Report Type: 
  Country: None (occurrence: None)
  Receive Date: 20051028
  Receipt Date: 20050817
  Transmission Date: 20060501
  Serious: No
  Sender: FDA-Public Use
  Company Number: COT_0197_2005

PATIENT
  Age: 42 Year
  Sex: Female
  Weight: 68.0396 kg

DRUGS (9)
  1. VENTAVIS [Suspect]
     Indication: PULMONARY HYPERTENSION
     Dosage: 5 MCG 7XD IH
     Route: 055
  2. PREDNISONE [Concomitant]
  3. AZATHIOPRINE [Concomitant]
  4. NORVASC [Concomitant]
  5. IBUPROFEN [Concomitant]
  6. TRACLEER [Concomitant]
  7. BACTRIM [Concomitant]
  8. NEXIUM [Concomitant]
  9. ENBREL [Concomitant]

REACTIONS (1)
  - DYSGEUSIA [None]
